FAERS Safety Report 12993893 (Version 1)
Quarter: 2016Q4

REPORT INFORMATION
  Report Type: Spontaneous
  Country: US (occurrence: US)
  Receive Date: 20161201
  Receipt Date: 20161201
  Transmission Date: 20170207
  Serious: Yes (Other)
  Sender: FDA-Public Use
  Company Number: None

PATIENT
  Age: 65 Year
  Sex: Female
  Weight: 56.7 kg

DRUGS (4)
  1. EQUATE NAPROXEN SODIUM [Suspect]
     Active Substance: NAPROXEN SODIUM
     Indication: BACK PAIN
     Dosage: ?          QUANTITY:1 TABLET(S);?
     Route: 048
     Dates: start: 20161127, end: 20161127
  2. VITAMINS [Concomitant]
     Active Substance: VITAMINS
  3. BABY ASPIRIN [Concomitant]
     Active Substance: ASPIRIN
  4. MINERALS [Concomitant]
     Active Substance: MINERALS

REACTIONS (1)
  - Hypersensitivity [None]

NARRATIVE: CASE EVENT DATE: 20161127
